FAERS Safety Report 6868103-X (Version None)
Quarter: 2010Q3

REPORT INFORMATION
  Report Type: 
  Country: None (occurrence: None)
  Receive Date: 20100722
  Receipt Date: 20080522
  Transmission Date: 20110219
  Serious: Yes (Other)
  Sender: FDA-Public Use
  Company Number: US-PFIZER INC-2008044990

PATIENT
  Sex: Female
  Weight: 83.91 kg

DRUGS (7)
  1. CHANTIX [Suspect]
     Indication: SMOKING CESSATION THERAPY
     Dates: start: 20080519
  2. GEODON [Concomitant]
  3. WELLBUTRIN [Concomitant]
  4. CLONAZEPAM [Concomitant]
  5. TOPAMAX [Concomitant]
  6. ALLEGRA [Concomitant]
     Indication: HYPERSENSITIVITY
  7. FLONASE [Concomitant]
     Indication: HYPERSENSITIVITY

REACTIONS (3)
  - DEPRESSION [None]
  - MOOD SWINGS [None]
  - SUICIDAL IDEATION [None]
